FAERS Safety Report 7659333-8 (Version None)
Quarter: 2011Q3

REPORT INFORMATION
  Report Type: 
  Country: None (occurrence: None)
  Receive Date: 20110802
  Receipt Date: 20110718
  Transmission Date: 20111222
  Serious: Yes (Hospitalization)
  Sender: FDA-Public Use
  Company Number: 2011MA008993

PATIENT
  Age: 76 Year
  Sex: Male

DRUGS (1)
  1. TAMSULOSIN HYDROCHLORIDE [Suspect]
     Indication: BENIGN PROSTATIC HYPERPLASIA

REACTIONS (10)
  - NOCTURIA [None]
  - FATIGUE [None]
  - PALLOR [None]
  - SOCIAL AVOIDANT BEHAVIOUR [None]
  - POLLAKIURIA [None]
  - MIDDLE INSOMNIA [None]
  - DEPRESSION [None]
  - ANXIETY [None]
  - URINARY INCONTINENCE [None]
  - BLADDER SPASM [None]
